FAERS Safety Report 23614430 (Version 2)
Quarter: 2024Q1

REPORT INFORMATION
  Report Type: Spontaneous
  Country: NL (occurrence: NL)
  Receive Date: 20240311
  Receipt Date: 20240319
  Transmission Date: 20240410
  Serious: Yes (Other)
  Sender: FDA-Public Use
  Company Number: None

PATIENT
  Age: 71 Year
  Sex: Female
  Weight: 66 kg

DRUGS (1)
  1. AMLODIPINE [Suspect]
     Active Substance: AMLODIPINE BESYLATE
     Indication: Hypertension
     Dosage: 1 X PER DAY,  TABLET   5MG / BRAND NAME NOT SPECIFIED,
     Route: 065
     Dates: start: 20210301

REACTIONS (5)
  - Nervous system disorder [Not Recovered/Not Resolved]
  - Compulsions [Not Recovered/Not Resolved]
  - Tremor [Not Recovered/Not Resolved]
  - Feeling jittery [Not Recovered/Not Resolved]
  - Progressive supranuclear palsy [Not Recovered/Not Resolved]
